FAERS Safety Report 11110984 (Version 2)
Quarter: 2015Q2

REPORT INFORMATION
  Report Type: Spontaneous
  Country: JP (occurrence: JP)
  Receive Date: 20150513
  Receipt Date: 20150605
  Transmission Date: 20150821
  Serious: Yes (Other)
  Sender: FDA-Public Use
  Company Number: JP-AMGEN-JPNSP2015046140

PATIENT
  Age: 69 Year
  Sex: Female
  Weight: 56 kg

DRUGS (8)
  1. FOLIAMIN [Concomitant]
     Active Substance: FOLIC ACID
     Indication: PROPHYLAXIS
     Dosage: 15 MG, WEEKLY
     Route: 048
     Dates: start: 20070314, end: 20121029
  2. FOLIAMIN [Concomitant]
     Active Substance: FOLIC ACID
     Dosage: 10 MG, 2X/WEEK
     Route: 048
     Dates: start: 20121030
  3. ATELEC [Concomitant]
     Active Substance: CILNIDIPINE
     Indication: HYPERTENSION
     Dosage: 5 MG, 1X/DAY
     Route: 048
     Dates: start: 20080304
  4. MOHRUS [Concomitant]
     Active Substance: KETOPROFEN
     Indication: RHEUMATOID ARTHRITIS
     Dosage: 20 MG, DAILY
     Route: 061
     Dates: start: 20080205
  5. METHOTREXATE SODIUM. [Suspect]
     Active Substance: METHOTREXATE SODIUM
     Indication: PRODUCT USED FOR UNKNOWN INDICATION
     Dosage: UNK
     Route: 065
  6. ENBREL [Interacting]
     Active Substance: ETANERCEPT
     Indication: RHEUMATOID ARTHRITIS
     Dosage: 25 MG, WEEKLY
     Route: 058
     Dates: start: 20080725, end: 20150323
  7. RHEUMATREX [Interacting]
     Active Substance: METHOTREXATE SODIUM
     Indication: RHEUMATOID ARTHRITIS
     Dosage: 10 MG, WEEKLY
     Route: 048
     Dates: start: 20080109, end: 20081031
  8. RHEUMATREX [Interacting]
     Active Substance: METHOTREXATE SODIUM
     Dosage: 8 MG, WEEKLY
     Route: 048
     Dates: start: 20081101

REACTIONS (4)
  - Skin lesion [Not Recovered/Not Resolved]
  - Drug interaction [Unknown]
  - Skin exfoliation [Not Recovered/Not Resolved]
  - Bowen^s disease [Recovering/Resolving]

NARRATIVE: CASE EVENT DATE: 201304
